FAERS Safety Report 11331163 (Version 1)
Quarter: 2015Q3

REPORT INFORMATION
  Report Type: Spontaneous
  Country: US (occurrence: None)
  Receive Date: 20150730
  Receipt Date: 20150730
  Transmission Date: 20151125
  Serious: Yes (Other)
  Sender: FDA-Public Use
  Company Number: None

PATIENT
  Age: 73 Year
  Sex: Female
  Weight: 88.45 kg

DRUGS (12)
  1. MAGNESIUM [Concomitant]
     Active Substance: MAGNESIUM
  2. ENTERIC ASPIRIN [Concomitant]
     Active Substance: ASPIRIN
  3. VIT-B-12 [Concomitant]
  4. MULTI-VIT [Concomitant]
     Active Substance: VITAMINS
  5. MEGA RED KRILL OIL [Concomitant]
  6. TYLENAL [Concomitant]
  7. VIT-D3 [Concomitant]
  8. COLLAGEN-TYPE 2 E/H.A. + GLUC + COND. [Concomitant]
  9. GABAPENTIN 100MG CAPSULES [Suspect]
     Active Substance: GABAPENTIN
     Indication: NEUROPATHY PERIPHERAL
     Dosage: 100 MG ?1 PILL-FIRST WK?2 PILLS -2ND WK?3 PILLS-3RD WK?ONCE-BEDTIME?BY MOUTH
     Route: 048
     Dates: start: 20150515, end: 20150607
  10. CALCIUM [Concomitant]
     Active Substance: CALCIUM
  11. PLAQUENIL [Concomitant]
     Active Substance: HYDROXYCHLOROQUINE SULFATE
  12. BROMELAIN [Concomitant]
     Active Substance: BROMELAINS

REACTIONS (12)
  - Dizziness [None]
  - Agitation [None]
  - Pruritus [None]
  - Dyskinesia [None]
  - Balance disorder [None]
  - Heart rate irregular [None]
  - Back pain [None]
  - Depression [None]
  - Asthenia [None]
  - Neck pain [None]
  - Nervousness [None]
  - Headache [None]

NARRATIVE: CASE EVENT DATE: 20150515
